FAERS Safety Report 16629696 (Version 3)
Quarter: 2019Q3

REPORT INFORMATION
  Report Type: Report from Study
  Country: RO (occurrence: RO)
  Receive Date: 20190725
  Receipt Date: 20190912
  Transmission Date: 20191004
  Serious: Yes (Hospitalization)
  Sender: FDA-Public Use
  Company Number: RO-PFIZER INC-2019310319

PATIENT
  Age: 49 Year
  Sex: Female
  Weight: 107 kg

DRUGS (3)
  1. ALGOCALMIN [Concomitant]
     Active Substance: METAMIZOLE SODIUM
  2. PARACETAMOL [Concomitant]
     Active Substance: ACETAMINOPHEN
     Dosage: 500 MG, UNK
     Route: 048
  3. TRASTUZUMAB. [Suspect]
     Active Substance: TRASTUZUMAB
     Indication: BREAST CANCER
     Dosage: 600 MG, UNK
     Route: 065
     Dates: start: 20190501

REACTIONS (7)
  - Nausea [Recovered/Resolved]
  - Malaise [Unknown]
  - Pyrexia [Recovered/Resolved]
  - Myalgia [Recovered/Resolved]
  - Abdominal pain upper [Recovered/Resolved]
  - Fatigue [Unknown]
  - Chills [Recovered/Resolved]
